FAERS Safety Report 6474505-6 (Version None)
Quarter: 2009Q4

REPORT INFORMATION
  Report Type: 
  Country: None (occurrence: None)
  Receive Date: 20091204
  Receipt Date: 20091125
  Transmission Date: 20100525
  Serious: Yes (Other)
  Sender: FDA-Public Use
  Company Number: CA-JNJFOC-20091200194

PATIENT
  Sex: Female
  Weight: 62.8 kg

DRUGS (1)
  1. REMICADE [Suspect]
     Indication: PSORIASIS
     Route: 042
     Dates: start: 20091027

REACTIONS (4)
  - ABDOMINAL PAIN UPPER [None]
  - DIARRHOEA [None]
  - LIP SWELLING [None]
  - SWOLLEN TONGUE [None]
